FAERS Safety Report 25926886 (Version 1)
Quarter: 2025Q4

REPORT INFORMATION
  Report Type: Spontaneous
  Country: US (occurrence: None)
  Receive Date: 20251015
  Receipt Date: 20251015
  Transmission Date: 20260117
  Serious: No
  Sender: FDA-CTU
  Company Number: None

PATIENT
  Age: 86 Year
  Sex: Male

DRUGS (1)
  1. ODOMZO [Suspect]
     Active Substance: SONIDEGIB
     Dosage: FREQUENCY : DAILY;?
     Route: 048
     Dates: start: 20250102

REACTIONS (1)
  - Alopecia [None]

NARRATIVE: CASE EVENT DATE: 20251015
